FAERS Safety Report 23071225 (Version 1)
Quarter: 2023Q4

REPORT INFORMATION
  Report Type: Report from Study
  Country: CA (occurrence: CA)
  Receive Date: 20231016
  Receipt Date: 20231016
  Transmission Date: 20240110
  Serious: Yes (Other)
  Sender: FDA-Public Use
  Company Number: CA-ABBVIE-5450604

PATIENT
  Sex: Male

DRUGS (1)
  1. HUMIRA [Suspect]
     Active Substance: ADALIMUMAB
     Indication: Psoriatic arthropathy
     Dosage: FORM STRENGTH WAS 40 MILLIGRAMS
     Route: 058
     Dates: start: 20211005

REACTIONS (8)
  - Ankle fracture [Unknown]
  - Ligament operation [Unknown]
  - Synovitis [Unknown]
  - Osteoarthritis [Unknown]
  - Bone marrow oedema [Unknown]
  - Osteochondrosis [Unknown]
  - Peripheral swelling [Unknown]
  - Post procedural complication [Unknown]
